FAERS Safety Report 19893798 (Version 2)
Quarter: 2022Q3

REPORT INFORMATION
  Report Type: Spontaneous
  Country: US (occurrence: US)
  Receive Date: 20210929
  Receipt Date: 20220729
  Transmission Date: 20221027
  Serious: Yes (Other)
  Sender: FDA-Public Use
  Company Number: US-DRREDDYS-SPO/USA/21/0141799

PATIENT
  Age: 65 Year
  Sex: Male

DRUGS (6)
  1. CIPROFLOXACIN [Suspect]
     Active Substance: CIPROFLOXACIN
     Indication: Product used for unknown indication
  2. DECITABINE [Suspect]
     Active Substance: DECITABINE
     Indication: Acute erythroid leukaemia
  3. CYTARABINE [Concomitant]
     Active Substance: CYTARABINE
     Indication: Acute erythroid leukaemia
  4. FILGRASTIM [Concomitant]
     Active Substance: FILGRASTIM
     Indication: Acute erythroid leukaemia
  5. CLADRIBINE [Concomitant]
     Active Substance: CLADRIBINE
     Indication: Acute erythroid leukaemia
  6. MITOXANTRONE [Concomitant]
     Active Substance: MITOXANTRONE HYDROCHLORIDE
     Indication: Acute erythroid leukaemia

REACTIONS (2)
  - Therapy non-responder [Unknown]
  - Drug hypersensitivity [Unknown]
